FAERS Safety Report 12439600 (Version 1)
Quarter: 2016Q2

REPORT INFORMATION
  Report Type: Spontaneous
  Country: US (occurrence: US)
  Receive Date: 20160606
  Receipt Date: 20160606
  Transmission Date: 20160815
  Serious: Yes (Other)
  Sender: FDA-Public Use
  Company Number: US-CELGENEUS-USA-2016056971

PATIENT

DRUGS (4)
  1. GEMCITABINE [Suspect]
     Active Substance: GEMCITABINE\GEMCITABINE HYDROCHLORIDE
     Indication: PANCREATIC CARCINOMA
     Route: 050
  2. ADI-PEG 20 [Suspect]
     Active Substance: PEGARGIMINASE
     Dosage: 1000 MILLIGRAM/SQ. METER
     Route: 030
  3. ABRAXANE [Suspect]
     Active Substance: PACLITAXEL
     Indication: PANCREATIC CARCINOMA
     Dosage: 125 MILLIGRAM/SQ. METER
     Route: 050
  4. ADI-PEG 20 [Suspect]
     Active Substance: PEGARGIMINASE
     Indication: PANCREATIC CARCINOMA
     Route: 030

REACTIONS (11)
  - Alopecia [Unknown]
  - Febrile neutropenia [Unknown]
  - Alanine aminotransferase increased [Unknown]
  - Haematotoxicity [Unknown]
  - Diarrhoea [Unknown]
  - Fatigue [Unknown]
  - Injection site rash [Unknown]
  - Pancreatic carcinoma [Unknown]
  - Aspartate aminotransferase increased [Unknown]
  - Injection site erythema [Unknown]
  - Liver function test increased [Unknown]
